FAERS Safety Report 18190943 (Version 1)
Quarter: 2020Q3

REPORT INFORMATION
  Report Type: Report from Study
  Country: None (occurrence: US)
  Receive Date: 20200825
  Receipt Date: 20200825
  Transmission Date: 20201103
  Serious: Yes (Other)
  Sender: FDA-Public Use
  Company Number: US-ABBVIE-20K-163-3532229-00

PATIENT
  Sex: Female

DRUGS (1)
  1. HUMIRA [Suspect]
     Active Substance: ADALIMUMAB
     Indication: RHEUMATOID ARTHRITIS
     Dosage: CITRATE FREE
     Route: 058

REACTIONS (6)
  - Arthropod sting [Recovered/Resolved]
  - Cystitis [Recovering/Resolving]
  - Fungal infection [Recovering/Resolving]
  - Anaphylactic shock [Recovered/Resolved]
  - Arthropod sting [Unknown]
  - Pelvic infection [Unknown]

NARRATIVE: CASE EVENT DATE: 2019
